FAERS Safety Report 24195806 (Version 1)
Quarter: 2024Q3

REPORT INFORMATION
  Report Type: Spontaneous
  Country: IT (occurrence: IT)
  Receive Date: 20240809
  Receipt Date: 20240809
  Transmission Date: 20241017
  Serious: Yes (Life-Threatening)
  Sender: MERCK
  Company Number: None

PATIENT
  Age: 45 Year
  Sex: Male
  Weight: 90 kg

DRUGS (1)
  1. BRIDION [Suspect]
     Active Substance: SUGAMMADEX
     Indication: Motor dysfunction
     Dosage: 500 MILLIGRAM, STRENGTH: 500MG/5ML
     Route: 042
     Dates: start: 20240716, end: 20240716

REACTIONS (1)
  - Neuromuscular block prolonged [Recovered/Resolved]

NARRATIVE: CASE EVENT DATE: 20240716
